FAERS Safety Report 16767630 (Version 3)
Quarter: 2022Q2

REPORT INFORMATION
  Report Type: Spontaneous
  Country: FR (occurrence: None)
  Receive Date: 20190903
  Receipt Date: 20220608
  Transmission Date: 20220721
  Serious: Yes (Other)
  Sender: FDA-Public Use
  Company Number: FR-MERCK KGAA-9027781

PATIENT
  Age: 64 Year
  Sex: Female
  Weight: 85 kg

DRUGS (1)
  1. LEVOTHYROXINE [Suspect]
     Active Substance: LEVOTHYROXINE
     Indication: Hypothyroidism
     Dosage: MAR OR APR 2017
     Dates: start: 2017

REACTIONS (20)
  - Foot fracture [Unknown]
  - Angina pectoris [Unknown]
  - Tachycardia [Recovered/Resolved]
  - Drug intolerance [Unknown]
  - Sleep disorder [Unknown]
  - Malaise [Unknown]
  - Dizziness [Unknown]
  - Fatigue [Unknown]
  - Fall [Unknown]
  - Alopecia [Unknown]
  - Muscle fatigue [Unknown]
  - Stress [Unknown]
  - Loss of personal independence in daily activities [Unknown]
  - Respiratory disorder [Unknown]
  - Lumbar radiculopathy [Unknown]
  - Hyperaesthesia [Unknown]
  - Initial insomnia [Unknown]
  - Middle insomnia [Unknown]
  - Hyperhidrosis [Unknown]
  - Palpitations [Unknown]

NARRATIVE: CASE EVENT DATE: 20170101
